FAERS Safety Report 7606208-6 (Version None)
Quarter: 2011Q3

REPORT INFORMATION
  Report Type: 
  Country: None (occurrence: None)
  Receive Date: 20110713
  Receipt Date: 20110627
  Transmission Date: 20111222
  Serious: Yes (Hospitalization, Other)
  Sender: FDA-Public Use
  Company Number: US-BAYER-2011-018365

PATIENT
  Age: 34 Year
  Sex: Female
  Weight: 83.9 kg

DRUGS (20)
  1. YAZ [Suspect]
     Indication: UTERINE LEIOMYOMA
  2. FIORICET [Concomitant]
     Dosage: ??-JUL-2008 00:00
     Dates: start: 20080701, end: 20080701
  3. FIORICET [Concomitant]
     Dosage: ??-JAN-2009 00:00
     Dates: start: 20090101, end: 20090101
  4. FIORICET [Concomitant]
     Dosage: ??-MAR-2009 00:00
     Dates: start: 20090301, end: 20090301
  5. ALBUTEROL SULFATE AUTOHALER [Concomitant]
     Indication: DYSPNOEA
     Dosage: UNK
     Dates: start: 20090201, end: 20090301
  6. FIORICET [Concomitant]
     Dosage: ??-APR-2009
     Dates: start: 20090401, end: 20090401
  7. POTASSIUM CHLORIDE [Concomitant]
     Dosage: UNK
     Dates: start: 20090201, end: 20090701
  8. DIFFERIN [Concomitant]
     Indication: ACNE
     Dosage: UNK
     Dates: start: 20080601, end: 20090901
  9. PREDNISONE [Concomitant]
     Indication: PNEUMONIA
     Dosage: 30 MG, UNK
     Dates: start: 20090201, end: 20091001
  10. PREDNISONE [Concomitant]
     Indication: ASTHMA
  11. YAZ [Suspect]
     Indication: CONTRACEPTION
     Dosage: UNK
     Dates: start: 20081013, end: 20090226
  12. MINOCYCLINE HCL [Concomitant]
     Dosage: UNK
     Dates: start: 20080901, end: 20081001
  13. PAROXETINE HCL [Concomitant]
     Indication: DEPRESSION
     Dosage: 10 MG, UNK
     Dates: start: 20081201
  14. CARDIZEM [Concomitant]
     Indication: HYPERTENSION
     Dosage: AS REPORTED: NOV2011-JUN2009
     Dates: end: 20090601
  15. DOXYCYCLINE [Concomitant]
     Dosage: UNK
     Dates: start: 20080601, end: 20080601
  16. CLINDAMYCIN [Concomitant]
     Dosage: ??-JAN-2009 00:00
     Dates: start: 20090101, end: 20090101
  17. AZITHROMYCIN [Concomitant]
     Dosage: UNK
     Dates: start: 20090201, end: 20090201
  18. CLINDAMYCIN [Concomitant]
     Dosage: ??-JUL-2008 00:00
     Dates: start: 20080701, end: 20080701
  19. CLINDAMYCIN [Concomitant]
     Dosage: ??-JUN-2009 00:00
     Dates: start: 20090601, end: 20090601
  20. FIORICET [Concomitant]
     Dosage: ??-NOV-2008 00:00
     Dates: start: 20081101, end: 20081101

REACTIONS (1)
  - THROMBOTIC STROKE [None]
